FAERS Safety Report 8433559-8 (Version None)
Quarter: 2012Q2

REPORT INFORMATION
  Report Type: 
  Country: None (occurrence: None)
  Receive Date: 20120613
  Receipt Date: 20120605
  Transmission Date: 20120825
  Serious: Yes (Other)
  Sender: FDA-Public Use
  Company Number: US-JNJFOC-20120603195

PATIENT

DRUGS (10)
  1. DOXORUBICIN HCL [Suspect]
     Indication: MANTLE CELL LYMPHOMA
     Dosage: 4 CYCLE OF INDUCTION THERAPY
     Route: 042
  2. RITUXIMAB [Suspect]
     Indication: MANTLE CELL LYMPHOMA
     Dosage: AGAIN 7 DAYS LATER
     Route: 065
  3. CYTARABINE [Suspect]
     Indication: MANTLE CELL LYMPHOMA
     Dosage: 4 CYCLE OF INDUCTION THERAPY
     Route: 065
  4. RITUXIMAB [Suspect]
     Dosage: 4 CYCLE OF INDUCTION THERAPY
     Route: 065
  5. DEXAMETHASONE [Suspect]
     Indication: MANTLE CELL LYMPHOMA
     Dosage: 4 CYCLE OF INDUCTION THERAPY
     Route: 065
  6. PREDNISONE TAB [Suspect]
     Indication: MANTLE CELL LYMPHOMA
     Dosage: 4 CYCLE OF INDUCTION THERAPY
     Route: 065
  7. CYCLOPHOSPHAMIDE [Suspect]
     Indication: MANTLE CELL LYMPHOMA
     Dosage: 4 CYCLE OF INDUCTION THERAPY
     Route: 065
  8. VINCRISTINE SULFATE [Suspect]
     Indication: MANTLE CELL LYMPHOMA
     Dosage: 4 CYCLE OF INDUCTION THERAPY
     Route: 065
  9. RITUXIMAB [Suspect]
     Dosage: BEFORE CHEMOTHERAPY
     Route: 065
  10. METHOTREXATE [Suspect]
     Indication: MANTLE CELL LYMPHOMA
     Dosage: 4 CYCLE OF INDUCTION THERAPY
     Route: 065

REACTIONS (1)
  - MYELODYSPLASTIC SYNDROME [None]
